FAERS Safety Report 5215121-3 (Version None)
Quarter: 2006Q4

REPORT INFORMATION
  Report Type: 
  Country: None (occurrence: None)
  Receive Date: 20061107
  Receipt Date: 20060707
  Transmission Date: 20070319
  Serious: No
  Sender: FDA-Public Use
  Company Number: 200614446BWH

PATIENT
  Age: 62 Year
  Sex: Male

DRUGS (8)
  1. LEVITRA [Suspect]
     Indication: ERECTILE DYSFUNCTION
     Dosage: 20 MG, QW, ORAL
     Route: 048
     Dates: start: 20060130
  2. ALLOPURINOL SODIUM [Concomitant]
  3. BISOPRIL/HCTZ [Concomitant]
  4. COZAAR [Concomitant]
  5. GLUCOVANCE [Concomitant]
  6. GLYBURIDE [Concomitant]
  7. LEVOXYL [Concomitant]
  8. ZOCOR [Concomitant]

REACTIONS (4)
  - GASTROOESOPHAGEAL REFLUX DISEASE [None]
  - MYDRIASIS [None]
  - NASAL CONGESTION [None]
  - PHOTOPHOBIA [None]
